FAERS Safety Report 7350109-8 (Version None)
Quarter: 2011Q1

REPORT INFORMATION
  Report Type: 
  Country: None (occurrence: None)
  Receive Date: 20110314
  Receipt Date: 20101124
  Transmission Date: 20110831
  Serious: Yes (Hospitalization)
  Sender: FDA-Public Use
  Company Number: A0897792A

PATIENT
  Age: 52 Year
  Sex: Female

DRUGS (1)
  1. AVANDIA [Suspect]
     Indication: DIABETES MELLITUS
     Route: 048
     Dates: start: 20030201, end: 20030501

REACTIONS (8)
  - CARDIAC DISORDER [None]
  - FLUID OVERLOAD [None]
  - CARDIAC ARREST [None]
  - PAIN [None]
  - CEREBROVASCULAR ACCIDENT [None]
  - ACUTE CORONARY SYNDROME [None]
  - CORONARY ARTERY DISEASE [None]
  - ECONOMIC PROBLEM [None]
